FAERS Safety Report 9633358 (Version 1)
Quarter: 2013Q4

REPORT INFORMATION
  Report Type: Spontaneous
  Country: US (occurrence: None)
  Receive Date: 20131018
  Receipt Date: 20131018
  Transmission Date: 20140711
  Serious: No
  Sender: FDA-Public Use
  Company Number: None

PATIENT
  Age: 66 Year
  Sex: Female
  Weight: 177 kg

DRUGS (7)
  1. LOSARTAN POTASSIUM [Suspect]
     Indication: HYPERTENSION
     Dosage: 250 MG PER 500 ML OR 1 G 50MG, 2 PUFFS, OR 1 TEASPOON, ETC., 1 TAB, TWICE DAILY, BY MOUTH
     Route: 048
     Dates: start: 201111, end: 20130810
  2. METFORMIN [Concomitant]
  3. JANUVIA [Concomitant]
  4. HYDROCHLOROTHIAZIDE [Concomitant]
  5. AMLODIPINE BESYLATE [Concomitant]
  6. LEVOTHYROXINE [Concomitant]
  7. ALEVE [Concomitant]

REACTIONS (7)
  - Arthralgia [None]
  - Asthenia [None]
  - Joint stiffness [None]
  - Muscular weakness [None]
  - Muscle spasms [None]
  - Back pain [None]
  - Gait disturbance [None]
